FAERS Safety Report 10056524 (Version 1)
Quarter: 2014Q2

REPORT INFORMATION
  Report Type: Spontaneous
  Country: FR (occurrence: FR)
  Receive Date: 20140403
  Receipt Date: 20140403
  Transmission Date: 20141212
  Serious: Yes (Hospitalization)
  Sender: FDA-Public Use
  Company Number: FR-SA-2014SA037712

PATIENT
  Age: 83 Year
  Sex: Female

DRUGS (11)
  1. LASILIX [Suspect]
     Indication: PRODUCT USED FOR UNKNOWN INDICATION
     Route: 048
     Dates: start: 20140123, end: 20140207
  2. CALCIPARINE [Suspect]
     Indication: PRODUCT USED FOR UNKNOWN INDICATION
     Route: 065
     Dates: start: 20140123, end: 20140214
  3. TAHOR [Suspect]
     Indication: PRODUCT USED FOR UNKNOWN INDICATION
     Route: 048
     Dates: end: 20140123
  4. ARANESP [Concomitant]
     Dosage: RECENT START
  5. TARDYFERON [Concomitant]
     Dosage: RECENT START
     Dates: end: 20140208
  6. CODEINE PHOSPHATE [Concomitant]
     Dosage: RECENT START
  7. LOPERAMIDE [Concomitant]
     Dosage: RECENT START
  8. VOGALENE [Concomitant]
     Dosage: RECENT START
  9. KARDEGIC [Concomitant]
     Dosage: LONG STANDING TREATMENT
  10. TENORMINE [Concomitant]
     Dosage: LONG STANDING TREATMENT
  11. INEXIUM [Concomitant]
     Dosage: LONG STANDING TREATMENT

REACTIONS (5)
  - Hepatocellular injury [Unknown]
  - Aspartate aminotransferase increased [Unknown]
  - Alanine aminotransferase increased [Unknown]
  - Gamma-glutamyltransferase increased [Unknown]
  - Blood alkaline phosphatase increased [Unknown]
